FAERS Safety Report 11566815 (Version 1)
Quarter: 2015Q3

REPORT INFORMATION
  Report Type: Spontaneous
  Country: US (occurrence: US)
  Receive Date: 20150916
  Receipt Date: 20150916
  Transmission Date: 20151125
  Serious: No
  Sender: FDA-Public Use
  Company Number: US-ELI_LILLY_AND_COMPANY-US200906005998

PATIENT
  Age: 72 Year
  Sex: Female

DRUGS (4)
  1. PANTOPRAZOLE [Concomitant]
     Active Substance: PANTOPRAZOLE SODIUM
  2. FORTEO [Suspect]
     Active Substance: TERIPARATIDE
  3. ESTRADIOL. [Concomitant]
     Active Substance: ESTRADIOL
  4. CEFAZOLIN [Concomitant]
     Active Substance: CEFAZOLIN

REACTIONS (3)
  - Ligament sprain [Recovering/Resolving]
  - Road traffic accident [Recovering/Resolving]
  - Neck injury [Recovering/Resolving]

NARRATIVE: CASE EVENT DATE: 200812
